FAERS Safety Report 12654146 (Version 1)
Quarter: 2016Q3

REPORT INFORMATION
  Report Type: Spontaneous
  Country: US (occurrence: None)
  Receive Date: 20160815
  Receipt Date: 20160815
  Transmission Date: 20161109
  Serious: Yes (Other)
  Sender: FDA-Public Use
  Company Number: None

PATIENT
  Age: 45 Year
  Sex: Female
  Weight: 56.7 kg

DRUGS (6)
  1. AMOXICILLAN-POTASSIUM CLA V [Suspect]
     Active Substance: AMOXICILLIN\CLAVULANATE POTASSIUM
     Indication: TOOTH INFECTION
     Route: 048
     Dates: start: 20160809, end: 20160812
  2. IBUPROFEN. [Concomitant]
     Active Substance: IBUPROFEN
  3. AMOXICILLAN-POTASSIUM CLA V [Suspect]
     Active Substance: AMOXICILLIN\CLAVULANATE POTASSIUM
     Indication: POST PROCEDURAL INFECTION
     Route: 048
     Dates: start: 20160809, end: 20160812
  4. MULTIVITAMIN [Concomitant]
     Active Substance: VITAMINS
  5. CHAMOMILE [Concomitant]
     Active Substance: CHAMOMILE
  6. AMOXICILLAN-POTASSIUM CLA V [Suspect]
     Active Substance: AMOXICILLIN\CLAVULANATE POTASSIUM
     Indication: TOOTH EXTRACTION
     Route: 048
     Dates: start: 20160809, end: 20160812

REACTIONS (2)
  - Drug ineffective [None]
  - Infection [None]

NARRATIVE: CASE EVENT DATE: 20160812
